FAERS Safety Report 5345125-1 (Version None)
Quarter: 2007Q2

REPORT INFORMATION
  Report Type: 
  Country: None (occurrence: None)
  Receive Date: 20070601
  Receipt Date: 20070523
  Transmission Date: 20071010
  Serious: Yes (Death, Hospitalization)
  Sender: FDA-Public Use
  Company Number: 163-21880-07050797

PATIENT
  Age: 85 Year
  Sex: Female
  Weight: 65.1 kg

DRUGS (4)
  1. REVLIMID [Suspect]
     Indication: MULTIPLE MYELOMA
     Dosage: SEE IMAGE
     Route: 048
     Dates: start: 20070308, end: 20070312
  2. REVLIMID [Suspect]
     Indication: MULTIPLE MYELOMA
     Dosage: SEE IMAGE
     Route: 048
     Dates: start: 20070405, end: 20070420
  3. DEXAMETHASONE TAB [Suspect]
     Indication: MULTIPLE MYELOMA
     Dosage: 40 MG, QD,SEE IMAGE
     Route: 048
     Dates: start: 20070308, end: 20070312
  4. DEXAMETHASONE TAB [Suspect]
     Indication: MULTIPLE MYELOMA
     Dosage: 40 MG, QD,SEE IMAGE
     Route: 048
     Dates: start: 20070405, end: 20070419

REACTIONS (23)
  - ABDOMINAL PAIN [None]
  - ASTHENIA [None]
  - BLOOD CREATININE INCREASED [None]
  - CONFUSIONAL STATE [None]
  - CULTURE URINE POSITIVE [None]
  - CYSTITIS [None]
  - DEHYDRATION [None]
  - DIVERTICULITIS [None]
  - FLUID OVERLOAD [None]
  - HAEMOGLOBIN DECREASED [None]
  - HEADACHE [None]
  - HYPOTENSION [None]
  - HYPOXIA [None]
  - LOSS OF CONSCIOUSNESS [None]
  - NEUTROPENIA [None]
  - PNEUMONIA [None]
  - PYREXIA [None]
  - RENAL FAILURE [None]
  - RENAL FAILURE ACUTE [None]
  - SEPSIS [None]
  - STAPHYLOCOCCAL INFECTION [None]
  - URINARY RETENTION [None]
  - URINARY TRACT INFECTION [None]
